FAERS Safety Report 16421035 (Version 1)
Quarter: 2019Q2

REPORT INFORMATION
  Report Type: Spontaneous
  Country: US (occurrence: US)
  Receive Date: 20190612
  Receipt Date: 20190612
  Transmission Date: 20190711
  Serious: Yes (Other)
  Sender: FDA-Public Use
  Company Number: US-PFIZER INC-2019247383

PATIENT
  Age: 69 Year
  Sex: Female
  Weight: 58.6 kg

DRUGS (1)
  1. LYRICA [Suspect]
     Active Substance: PREGABALIN
     Indication: NEUROPATHY PERIPHERAL
     Dosage: 150 MG, 2X/DAY
     Route: 048

REACTIONS (2)
  - Lung neoplasm malignant [Unknown]
  - Breast cancer stage III [Recovering/Resolving]

NARRATIVE: CASE EVENT DATE: 201208
